FAERS Safety Report 24603856 (Version 1)
Quarter: 2024Q4

REPORT INFORMATION
  Report Type: Report from Study
  Country: US (occurrence: US)
  Receive Date: 20241111
  Receipt Date: 20241111
  Transmission Date: 20250114
  Serious: Yes (Other)
  Sender: ABBVIE
  Company Number: US-ABBVIE-5995190

PATIENT
  Age: 44 Year
  Sex: Male

DRUGS (3)
  1. SKYRIZI [Suspect]
     Active Substance: RISANKIZUMAB-RZAA
     Indication: Psoriasis
     Dosage: WEEK 0?FORM STRENGTH: 150MG/ML
     Route: 058
     Dates: start: 20240416, end: 20240416
  2. SKYRIZI [Suspect]
     Active Substance: RISANKIZUMAB-RZAA
     Dosage: WEEK 4?FORM STRENGTH: 150MG/ML
     Route: 058
     Dates: start: 20240515, end: 20240515
  3. SKYRIZI [Suspect]
     Active Substance: RISANKIZUMAB-RZAA
     Dosage: FORM STRENGTH: 150MG/ML
     Route: 058
     Dates: start: 202410

REACTIONS (3)
  - Joint dislocation [Unknown]
  - Psoriasis [Recovering/Resolving]
  - Skin burning sensation [Unknown]

NARRATIVE: CASE EVENT DATE: 20240101
